FAERS Safety Report 21330638 (Version 2)
Quarter: 2022Q3

REPORT INFORMATION
  Report Type: Spontaneous
  Country: CH (occurrence: CH)
  Receive Date: 20220913
  Receipt Date: 20220920
  Transmission Date: 20221026
  Serious: Yes (Other)
  Sender: FDA-Public Use
  Company Number: CH-BEH-2022149701

PATIENT

DRUGS (1)
  1. HIZENTRA [Suspect]
     Active Substance: HUMAN IMMUNOGLOBULIN G
     Indication: Inclusion body myositis
     Route: 065

REACTIONS (3)
  - Inclusion body myositis [Not Recovered/Not Resolved]
  - No adverse event [Unknown]
  - Off label use [Unknown]
